FAERS Safety Report 9379903 (Version 1)
Quarter: 2013Q3

REPORT INFORMATION
  Report Type: Spontaneous
  Country: US (occurrence: None)
  Receive Date: 20130701
  Receipt Date: 20130701
  Transmission Date: 20140515
  Serious: Yes (Hospitalization)
  Sender: FDA-Public Use
  Company Number: None

PATIENT
  Age: 74 Year
  Sex: Male

DRUGS (1)
  1. TARCEVA 100MG GENENTECH [Suspect]
     Indication: PANCREATIC NEOPLASM
     Route: 048
     Dates: start: 20130618

REACTIONS (4)
  - Diarrhoea [None]
  - Vomiting [None]
  - Aphagia [None]
  - Fluid intake reduced [None]
